FAERS Safety Report 15945535 (Version 1)
Quarter: 2019Q1

REPORT INFORMATION
  Report Type: Report from Study
  Country: US (occurrence: US)
  Receive Date: 20190211
  Receipt Date: 20190211
  Transmission Date: 20190417
  Serious: Yes (Hospitalization, Other)
  Sender: FDA-Public Use
  Company Number: US-SA-2019SA030486

PATIENT
  Age: 82 Year
  Sex: Male

DRUGS (1)
  1. INSULIN GLARGINE [Suspect]
     Active Substance: INSULIN GLARGINE
     Dosage: UNK UNK, UNK

REACTIONS (4)
  - Hospitalisation [Unknown]
  - Dementia [Unknown]
  - Cardiac failure [Unknown]
  - Cardiac disorder [Unknown]

NARRATIVE: CASE EVENT DATE: 2015
